FAERS Safety Report 6742866-6 (Version None)
Quarter: 2010Q2

REPORT INFORMATION
  Report Type: 
  Country: None (occurrence: None)
  Receive Date: 20100526
  Receipt Date: 20100512
  Transmission Date: 20101027
  Serious: Yes (Other)
  Sender: FDA-Public Use
  Company Number: US-MYLANLABS-2010S1008408

PATIENT
  Age: 48 Year
  Sex: Female

DRUGS (38)
  1. METHOTREXATE [Suspect]
     Indication: BEHCET'S SYNDROME
     Dosage: TITRATED FROM 7.5 TO 20 MG/WEEK
     Route: 065
     Dates: start: 19981001, end: 19990701
  2. PLAQUENIL [Suspect]
     Indication: BEHCET'S SYNDROME
     Route: 048
     Dates: start: 19990701
  3. PLAQUENIL [Suspect]
     Route: 065
     Dates: start: 19990701
  4. PLAQUENIL [Suspect]
     Route: 065
     Dates: start: 19990701
  5. DAPSONE [Suspect]
     Indication: BEHCET'S SYNDROME
     Route: 065
     Dates: start: 19990901, end: 20000501
  6. COLCHICINE [Suspect]
     Indication: BEHCET'S SYNDROME
     Route: 065
     Dates: start: 19991001
  7. CYCLOSPORINE [Suspect]
     Indication: BEHCET'S SYNDROME
     Route: 065
     Dates: start: 20000501, end: 20010106
  8. CELLCEPT [Suspect]
     Indication: BEHCET'S SYNDROME
     Route: 065
     Dates: start: 20010101, end: 20010901
  9. LEUKERAN [Suspect]
     Indication: BEHCET'S SYNDROME
     Dosage: TITRATED UP TO 4MG DAILY
     Route: 065
     Dates: start: 20011101, end: 20020901
  10. LEUKERAN [Suspect]
     Route: 065
     Dates: start: 20011101, end: 20020901
  11. LEUKERAN [Suspect]
     Route: 065
     Dates: start: 20011101, end: 20020901
  12. CYTOXAN [Suspect]
     Indication: BEHCET'S SYNDROME
     Route: 042
     Dates: start: 20021201, end: 20040501
  13. CYTOXAN [Suspect]
     Route: 042
     Dates: start: 20021201, end: 20040501
  14. CYTOXAN [Suspect]
     Route: 042
     Dates: start: 20021201, end: 20040501
  15. CYTOXAN [Suspect]
     Route: 042
     Dates: start: 20021201, end: 20040501
  16. CYTOXAN [Suspect]
     Route: 042
     Dates: start: 20021201, end: 20040501
  17. ENBREL [Suspect]
     Indication: BEHCET'S SYNDROME
     Route: 065
     Dates: start: 20040901, end: 20050201
  18. IMURAN [Suspect]
     Indication: BEHCET'S SYNDROME
     Route: 065
     Dates: start: 20050201, end: 20050401
  19. REMICADE [Suspect]
     Indication: BEHCET'S SYNDROME
     Dosage: ADMINISTERED AT THIS DOSAGE 4/2005
     Route: 042
     Dates: start: 20050401, end: 20060201
  20. REMICADE [Suspect]
     Route: 042
     Dates: start: 20050401, end: 20060201
  21. REMICADE [Suspect]
     Route: 042
     Dates: start: 20050401, end: 20060201
  22. RITUXAN [Suspect]
     Indication: BEHCET'S SYNDROME
     Dosage: TWO DOSES ADMINISTERED: 6/2006 AND 7/5/2006
     Route: 042
     Dates: start: 20060601, end: 20060705
  23. ARAVA [Suspect]
     Indication: BEHCET'S SYNDROME
     Route: 065
     Dates: start: 20070601
  24. PREDNISONE TAB [Suspect]
     Indication: BEHCET'S SYNDROME
     Dosage: ~10MG, OCCASIONAL PULSES
     Route: 065
  25. IMMUNE GLOBULIN NOS [Concomitant]
     Indication: IMMUNODEFICIENCY COMMON VARIABLE
     Dosage: MONTHLY INFUSION
     Route: 041
  26. FUROSEMIDE [Concomitant]
     Route: 065
  27. TERBUTALINE SULFATE [Concomitant]
     Route: 065
  28. THEOPHYLLINE [Concomitant]
     Route: 065
  29. FLUTICASONE PROPIONATE W/SALMETEROL [Concomitant]
     Route: 065
  30. BREVA [Concomitant]
     Route: 065
  31. ESOMEPRAZOLE MAGNESIUM [Concomitant]
     Route: 065
  32. ERYTHROMYCIN [Concomitant]
     Route: 065
  33. PENTOXIFYLLINE [Concomitant]
     Route: 065
  34. PREGABALIN [Concomitant]
     Route: 065
  35. ACYCLOVIR SODIUM [Concomitant]
     Route: 065
  36. SERTRALINE HCL [Concomitant]
     Route: 065
  37. FOLIC ACID [Concomitant]
     Route: 065
  38. FENTANYL [Concomitant]
     Route: 062

REACTIONS (2)
  - APHTHOUS STOMATITIS [None]
  - SQUAMOUS CELL CARCINOMA OF SKIN [None]
